FAERS Safety Report 6266654-2 (Version None)
Quarter: 2009Q3

REPORT INFORMATION
  Report Type: 
  Country: None (occurrence: None)
  Receive Date: 20090710
  Receipt Date: 20090702
  Transmission Date: 20100115
  Serious: Yes (Hospitalization)
  Sender: FDA-Public Use
  Company Number: 2009AL001124

PATIENT
  Age: 47 Year
  Sex: Female
  Weight: 73.9363 kg

DRUGS (19)
  1. DIGOXIN [Suspect]
     Indication: CARDIAC DISORDER
     Dosage: 0.125MG, DAILY, PO
     Route: 048
     Dates: start: 20000101, end: 20061001
  2. RENAGEL [Concomitant]
  3. METOPROLOL SUCCINATE [Concomitant]
  4. HYDRALAZINE HCL [Concomitant]
  5. NEPHROCAPS [Concomitant]
  6. IMDUR [Concomitant]
  7. DARBEPOETIN [Concomitant]
  8. ISOSORBIDE MONONITRATE [Concomitant]
  9. .. [Concomitant]
  10. FOLIC ACID [Concomitant]
  11. ENALAPRIL MALEATE [Concomitant]
  12. THIAMINE HCL [Concomitant]
  13. VASOTEC [Concomitant]
  14. ZANTAC [Concomitant]
  15. CLONIDINE [Concomitant]
  16. DILANTIN [Concomitant]
  17. VITAMIN B COMPLEX CAP [Concomitant]
  18. ATROPINE [Concomitant]
  19. TEBRA [Concomitant]

REACTIONS (21)
  - ABDOMINAL PAIN [None]
  - BACK PAIN [None]
  - CEREBRAL HAEMORRHAGE [None]
  - CEREBROVASCULAR ACCIDENT [None]
  - DECREASED APPETITE [None]
  - DYSPNOEA [None]
  - GAIT DISTURBANCE [None]
  - HAEMODIALYSIS [None]
  - HYPERTENSION [None]
  - MENTAL STATUS CHANGES [None]
  - MUSCULOSKELETAL PAIN [None]
  - NAUSEA [None]
  - OEDEMA PERIPHERAL [None]
  - OLIGURIA [None]
  - RENAL FAILURE ACUTE [None]
  - RENAL FAILURE CHRONIC [None]
  - SINUS TACHYCARDIA [None]
  - TACHYCARDIA [None]
  - VAGINAL HAEMORRHAGE [None]
  - VISION BLURRED [None]
  - VOMITING [None]
